FAERS Safety Report 4869978-6 (Version None)
Quarter: 2005Q4

REPORT INFORMATION
  Report Type: 
  Country: None (occurrence: None)
  Receive Date: 20051223
  Receipt Date: 20051212
  Transmission Date: 20060501
  Serious: Yes (Death, Hospitalization)
  Sender: FDA-Public Use
  Company Number: USA050393561

PATIENT
  Age: 78 Year
  Sex: Female
  Weight: 94.1 kg

DRUGS (13)
  1. CYMBALTA [Suspect]
     Indication: DEPRESSION
     Dosage: 60 MG, ORAL
     Route: 048
     Dates: start: 20050303, end: 20050314
  2. HUMULIN    /PRI/ (INSULIN HUMAN) [Concomitant]
  3. NEURONTIN [Concomitant]
  4. LASIX [Concomitant]
  5. GLUCOTROL XL [Concomitant]
  6. DIOVAN [Concomitant]
  7. DICYCLOMINE (DICYCLOMINE) [Concomitant]
  8. K-DUR 10 [Concomitant]
  9. CARDURA [Concomitant]
  10. ATACAND [Concomitant]
  11. ULTRAM [Concomitant]
  12. LOZOL [Concomitant]
  13. VIOXX [Concomitant]

REACTIONS (3)
  - BLOOD ALBUMIN DECREASED [None]
  - HEPATIC ENCEPHALOPATHY [None]
  - PANCREATIC MASS [None]
